FAERS Safety Report 11821816 (Version 1)
Quarter: 2015Q4

REPORT INFORMATION
  Report Type: Spontaneous
  Country: US (occurrence: US)
  Receive Date: 20151210
  Receipt Date: 20151210
  Transmission Date: 20160305
  Serious: No
  Sender: FDA-Public Use
  Company Number: US-JNJFOC-20150903470

PATIENT
  Age: 72 Year
  Sex: Female

DRUGS (10)
  1. PREDNISONE. [Concomitant]
     Active Substance: PREDNISONE
  2. STALEVO [Concomitant]
     Active Substance: CARBIDOPA\ENTACAPONE\LEVODOPA
  3. IMBRUVICA [Suspect]
     Active Substance: IBRUTINIB
     Indication: LYMPHOMA
     Route: 048
     Dates: start: 20150718, end: 201507
  4. FOLIC ACID. [Concomitant]
     Active Substance: FOLIC ACID
  5. METHENAMINE [Concomitant]
     Active Substance: METHENAMINE
  6. ENALAPRIL [Concomitant]
     Active Substance: ENALAPRIL
  7. FLUDROCORTISONE [Concomitant]
     Active Substance: FLUDROCORTISONE
  8. MIDODRINE [Concomitant]
     Active Substance: MIDODRINE
  9. PLAVIX [Concomitant]
     Active Substance: CLOPIDOGREL BISULFATE
  10. TIMOLOL. [Concomitant]
     Active Substance: TIMOLOL

REACTIONS (4)
  - Diarrhoea [Recovered/Resolved]
  - Off label use [Unknown]
  - Mobility decreased [Recovering/Resolving]
  - Asthenia [Recovering/Resolving]

NARRATIVE: CASE EVENT DATE: 201507
